FAERS Safety Report 7387677-6 (Version None)
Quarter: 2011Q1

REPORT INFORMATION
  Report Type: 
  Country: None (occurrence: None)
  Receive Date: 20110331
  Receipt Date: 20101021
  Transmission Date: 20110831
  Serious: Yes (Hospitalization)
  Sender: FDA-Public Use
  Company Number: US-BAYER-200942916NA

PATIENT
  Sex: Female
  Weight: 41.818 kg

DRUGS (8)
  1. ZITHROMAX [Concomitant]
     Indication: SINUSITIS
     Dosage: UNK
     Dates: start: 20080501
  2. FLOMAX [Concomitant]
     Indication: NAUSEA
     Dosage: UNK
     Dates: start: 20080501
  3. ACETAMINOPHEN [Concomitant]
     Indication: HEADACHE
  4. PHENERGAN HCL [Concomitant]
     Indication: NAUSEA
     Dosage: UNK
     Dates: start: 20080501
  5. YAZ [Suspect]
     Dosage: UNK
     Route: 048
     Dates: start: 20070601, end: 20080501
  6. YASMIN [Suspect]
     Route: 048
  7. YAZ [Suspect]
     Dosage: UNK
     Dates: start: 20070709, end: 20071004
  8. SPIRONOLACTONE [Concomitant]

REACTIONS (3)
  - INJURY [None]
  - TRANSVERSE SINUS THROMBOSIS [None]
  - THROMBOSIS [None]
